FAERS Safety Report 6521972-5 (Version None)
Quarter: 2009Q4

REPORT INFORMATION
  Report Type: 
  Country: None (occurrence: None)
  Receive Date: 20091224
  Receipt Date: 20091215
  Transmission Date: 20100525
  Serious: Yes (Death, Hospitalization)
  Sender: FDA-Public Use
  Company Number: 09-PDX10-01044

PATIENT
  Age: 49 Year
  Sex: Female

DRUGS (14)
  1. PRALATREXATE (20 MG/ML, INJECTION FOR INFUSION) [Suspect]
     Indication: MYCOSIS FUNGOIDES
     Dosage: 14.7 MG (14.7 MG, 1 IN 2 WK), IV
     Route: 042
     Dates: start: 20091120
  2. GEMCITABINE [Suspect]
     Indication: MYCOSIS FUNGOIDES
     Dosage: 588 MG (588 MG, 1 IN 2 WK), IV
     Route: 042
     Dates: start: 20091121
  3. MORPHINE SULFATE [Concomitant]
  4. HYDROMORPHONE HYDROCHLORIDE [Concomitant]
  5. MULTI-VITAMIN [Concomitant]
  6. EZETIMIBE [Concomitant]
  7. LEVOTHYROXINE SODIUM [Concomitant]
  8. ATORVASTATIN [Concomitant]
  9. CETIRIZINE [Concomitant]
  10. CALCIUM [Concomitant]
  11. FUIROSEMIDE [Concomitant]
  12. POTASSIUM CHLORIDE [Concomitant]
  13. PREGABALIN [Concomitant]
  14. OMEPRAZOLE [Concomitant]

REACTIONS (14)
  - CONDITION AGGRAVATED [None]
  - CULTURE WOUND POSITIVE [None]
  - ELECTROLYTE IMBALANCE [None]
  - ENTEROCOCCAL INFECTION [None]
  - HAEMOGLOBIN DECREASED [None]
  - HYPOTENSION [None]
  - HYPOVOLAEMIA [None]
  - MYCOSIS FUNGOIDES [None]
  - PAIN [None]
  - PLEURAL EFFUSION [None]
  - PULMONARY OEDEMA [None]
  - SKIN EXFOLIATION [None]
  - WHITE BLOOD CELL COUNT DECREASED [None]
  - WOUND INFECTION PSEUDOMONAS [None]
